FAERS Safety Report 18059991 (Version 1)
Quarter: 2020Q3

REPORT INFORMATION
  Report Type: Spontaneous
  Country: US (occurrence: US)
  Receive Date: 20200723
  Receipt Date: 20200723
  Transmission Date: 20201103
  Serious: No
  Sender: FDA-Public Use
  Company Number: US-RECKITT BENCKISER HEALTHCARE INT LIMITED-RB-91414-2019

PATIENT
  Age: 60 Year
  Sex: Female

DRUGS (1)
  1. MUCINEX DM MAXIMUM STRENGTH [Suspect]
     Active Substance: DEXTROMETHORPHAN HYDROBROMIDE\GUAIFENESIN
     Indication: LOWER RESPIRATORY TRACT INFECTION
     Dosage: 1200 MILLIGRAM, SINGLE
     Route: 048
     Dates: start: 20191003, end: 20191003

REACTIONS (4)
  - Wrong technique in product usage process [Unknown]
  - Product size issue [Unknown]
  - Product use in unapproved indication [Unknown]
  - Dysphagia [Unknown]

NARRATIVE: CASE EVENT DATE: 20191003
